FAERS Safety Report 6040983-X (Version None)
Quarter: 2009Q1

REPORT INFORMATION
  Report Type: 
  Country: None (occurrence: None)
  Receive Date: 20090116
  Receipt Date: 20080812
  Transmission Date: 20090719
  Serious: No
  Sender: FDA-Public Use
  Company Number: US-BRISTOL-MYERS SQUIBB COMPANY-14266878

PATIENT
  Age: 8 Year
  Sex: Male

DRUGS (2)
  1. ABILIFY [Suspect]
     Indication: ABNORMAL BEHAVIOUR
     Route: 048
     Dates: start: 20080329, end: 20080517
  2. ABILIFY [Suspect]
     Indication: LEARNING DISORDER
     Route: 048
     Dates: start: 20080329, end: 20080517

REACTIONS (1)
  - BLOOD CHOLESTEROL INCREASED [None]
